FAERS Safety Report 5670948-9 (Version None)
Quarter: 2008Q2

REPORT INFORMATION
  Report Type: 
  Country: None (occurrence: None)
  Receive Date: 20080305
  Receipt Date: 20071119
  Transmission Date: 20081010
  Serious: Yes (Other)
  Sender: FDA-Public Use
  Company Number: BDI-010609

PATIENT
  Age: 46 Year
  Sex: Female

DRUGS (3)
  1. ISOVUE-300 [Suspect]
     Indication: COMPUTERISED TOMOGRAM ABDOMEN
     Dosage: 110ML ONCE INTRAVENOUS
     Route: 042
     Dates: start: 20071108, end: 20071108
  2. ISOVUE-300 [Suspect]
     Indication: PELVIC MASS
     Dosage: 110ML ONCE INTRAVENOUS
     Route: 042
     Dates: start: 20071108, end: 20071108
  3. SOLU-MEDROL [Concomitant]

REACTIONS (1)
  - HYPERSENSITIVITY [None]
